FAERS Safety Report 9385136 (Version 2)
Quarter: 2013Q3

REPORT INFORMATION
  Report Type: Spontaneous
  Country: JP (occurrence: JP)
  Receive Date: 20130705
  Receipt Date: 20130710
  Transmission Date: 20140515
  Serious: Yes (Hospitalization)
  Sender: FDA-Public Use
  Company Number: JP-BAYER-2013-079055

PATIENT
  Age: 42 Year
  Sex: Female
  Weight: 50 kg

DRUGS (6)
  1. ACETYLSALICYLIC ACID({=100 MG) [Suspect]
     Indication: ANTIPHOSPHOLIPID SYNDROME
     Dosage: UNK
     Route: 048
  2. INSULIN [Concomitant]
     Indication: TYPE 2 DIABETES MELLITUS
     Dosage: UNK
  3. UNFRACTIONATED HEPARIN [Concomitant]
     Dosage: DAILY DOSE 5000 U
  4. UNFRACTIONATED HEPARIN [Concomitant]
     Dosage: DAILY DOSE 8000 U
  5. UNFRACTIONATED HEPARIN [Concomitant]
     Dosage: DAILY DOSE 10000 U
  6. UNFRACTIONATED HEPARIN [Concomitant]
     Dosage: DAILY DOSE 5000 U

REACTIONS (5)
  - Gastric haemorrhage [Recovering/Resolving]
  - Gastric polyps [Recovering/Resolving]
  - Off label use [None]
  - Anaemia [None]
  - Hypoalbuminaemia [None]
